FAERS Safety Report 11592517 (Version 1)
Quarter: 2015Q4

REPORT INFORMATION
  Report Type: Spontaneous
  Country: GB (occurrence: GB)
  Receive Date: 20151005
  Receipt Date: 20151005
  Transmission Date: 20160304
  Serious: Yes (Hospitalization)
  Sender: FDA-Public Use
  Company Number: GB-TEVA-596180ACC

PATIENT
  Age: 75 Year
  Sex: Male

DRUGS (4)
  1. SUMATRIPTAN. [Suspect]
     Active Substance: SUMATRIPTAN
     Route: 048
  2. WARFARIN [Concomitant]
     Active Substance: WARFARIN
  3. BISOPROLOL [Concomitant]
     Active Substance: BISOPROLOL
  4. DIGOXIN. [Concomitant]
     Active Substance: DIGOXIN

REACTIONS (2)
  - Confusional state [Recovered/Resolved]
  - Loss of consciousness [Recovered/Resolved]
